FAERS Safety Report 4819848-4 (Version None)
Quarter: 2005Q4

REPORT INFORMATION
  Report Type: 
  Country: None (occurrence: None)
  Receive Date: 20051102
  Receipt Date: 20051025
  Transmission Date: 20060501
  Serious: Yes (Other)
  Sender: FDA-Public Use
  Company Number: HQWYE432013SEP05

PATIENT
  Age: 69 Year
  Sex: Male

DRUGS (5)
  1. CORDARONE [Suspect]
     Indication: ATRIAL FIBRILLATION
     Dosage: 200 MG 1X PER 1 DAY ORAL
     Route: 048
     Dates: start: 20011001
  2. ENALAPRIL MALEATE [Concomitant]
  3. HYDROCHLOROTHIAZIDE [Concomitant]
  4. MARCUMAR [Concomitant]
  5. SIMVASTATIN [Concomitant]

REACTIONS (7)
  - ASPIRATION JOINT ABNORMAL [None]
  - FALL [None]
  - MUSCLE HAEMORRHAGE [None]
  - MUSCLE RUPTURE [None]
  - SCAR [None]
  - TENDON INJURY [None]
  - TENDON RUPTURE [None]
